FAERS Safety Report 10384971 (Version 5)
Quarter: 2015Q1

REPORT INFORMATION
  Report Type: Report from Study
  Country: US (occurrence: US)
  Receive Date: 20140814
  Receipt Date: 20150213
  Transmission Date: 20150720
  Serious: Yes (Hospitalization, Disabling)
  Sender: FDA-Public Use
  Company Number: US-ACTELION-A-NJ2014-103492

PATIENT
  Age: 11 Year
  Sex: Female

DRUGS (12)
  1. REMODULIN [Concomitant]
     Active Substance: TREPROSTINIL
     Dosage: 44 NG/KG, PER MIN
     Dates: start: 20140303
  2. CIALIS [Concomitant]
     Active Substance: TADALAFIL
  3. TRACLEER [Suspect]
     Active Substance: BOSENTAN\BOSENTAN MONOHYDRATE
     Indication: PULMONARY ARTERIAL HYPERTENSION
     Dosage: 62.5 MG, BID
     Route: 048
     Dates: start: 20140712, end: 20140720
  4. TRACLEER [Suspect]
     Active Substance: BOSENTAN\BOSENTAN MONOHYDRATE
     Dosage: 31.25 MG, BID
     Route: 048
     Dates: start: 20140720
  5. TRACLEER [Suspect]
     Active Substance: BOSENTAN\BOSENTAN MONOHYDRATE
     Dosage: 31.25 MG, BID
     Route: 048
     Dates: start: 20140614
  6. ADCIRCA [Concomitant]
     Active Substance: TADALAFIL
     Dosage: 40 MG, QD
     Route: 048
     Dates: start: 200712
  7. FLOLAN [Concomitant]
     Active Substance: EPOPROSTENOL SODIUM
  8. COUMADIN [Concomitant]
     Active Substance: WARFARIN SODIUM
     Dosage: 7 MG, QD
  9. NEURONTIN [Concomitant]
     Active Substance: GABAPENTIN
     Dosage: 200 MG, BID
     Dates: start: 201405
  10. NIFEDIPINE. [Concomitant]
     Active Substance: NIFEDIPINE
     Dosage: 90 MG AM/ 60 MG PM, BID
     Dates: start: 200711
  11. LEVOCARNITINE. [Concomitant]
     Active Substance: LEVOCARNITINE
     Dosage: 660 MG AM/ 990MG PM, BID
     Dates: start: 201405
  12. ASPIRIN. [Concomitant]
     Active Substance: ASPIRIN
     Dosage: 81 MG, QD
     Dates: start: 200910

REACTIONS (7)
  - Nausea [Recovered/Resolved]
  - Syncope [Unknown]
  - Pulmonary arterial hypertension [Unknown]
  - Hypertensive crisis [Unknown]
  - Condition aggravated [Unknown]
  - Pulmonary hypertensive crisis [Unknown]
  - Abdominal pain upper [Recovered/Resolved]

NARRATIVE: CASE EVENT DATE: 20140712
